FAERS Safety Report 21322264 (Version 1)
Quarter: 2022Q3

REPORT INFORMATION
  Report Type: Spontaneous
  Country: US (occurrence: None)
  Receive Date: 20220911
  Receipt Date: 20220911
  Transmission Date: 20221027
  Serious: Yes (Other)
  Sender: FDA-Public Use
  Company Number: None

PATIENT
  Age: 44 Year
  Sex: Female

DRUGS (1)
  1. BEBTELOVIMAB [Suspect]
     Active Substance: BEBTELOVIMAB
     Indication: COVID-19
     Dosage: FREQUENCY : ONCE;?
     Route: 042

REACTIONS (11)
  - Pain [None]
  - Asthenia [None]
  - Condition aggravated [None]
  - Insomnia [None]
  - Nausea [None]
  - Dyspnoea [None]
  - Cough [None]
  - Chest pain [None]
  - Headache [None]
  - Tooth infection [None]
  - Toothache [None]

NARRATIVE: CASE EVENT DATE: 20220818
